FAERS Safety Report 15130557 (Version 1)
Quarter: 2018Q3

REPORT INFORMATION
  Report Type: Report from Study
  Country: CA (occurrence: CA)
  Receive Date: 20180711
  Receipt Date: 20180711
  Transmission Date: 20181010
  Serious: Yes (Hospitalization)
  Sender: FDA-Public Use
  Company Number: CA-JNJFOC-20180624460

PATIENT
  Age: 31 Year
  Sex: Female
  Weight: 51.6 kg

DRUGS (1)
  1. REMICADE [Suspect]
     Active Substance: INFLIXIMAB
     Indication: CROHN^S DISEASE
     Dosage: ALSO REPORTED AS 300 MG
     Route: 042
     Dates: start: 20180319

REACTIONS (4)
  - Rash pruritic [Unknown]
  - Viral infection [Recovering/Resolving]
  - Pleural effusion [Unknown]
  - Abdominal pain [Unknown]

NARRATIVE: CASE EVENT DATE: 2018
